FAERS Safety Report 5878273-8 (Version None)
Quarter: 2008Q3

REPORT INFORMATION
  Report Type: 
  Country: None (occurrence: None)
  Receive Date: 20080911
  Receipt Date: 20080904
  Transmission Date: 20090109
  Serious: Yes (Hospitalization)
  Sender: FDA-Public Use
  Company Number: JP-AVENTIS-200812695JP

PATIENT
  Age: 34 Year
  Sex: Male
  Weight: 73 kg

DRUGS (4)
  1. LASIX [Suspect]
     Route: 048
     Dates: start: 20080729, end: 20080808
  2. LASIX [Suspect]
     Route: 048
     Dates: start: 20080808, end: 20080811
  3. TRANSAMIN [Concomitant]
     Dosage: DOSE QUANTITY: 2; DOSE UNIT: CUP
     Dates: start: 20080729, end: 20080830
  4. MOBIC [Concomitant]
     Dates: start: 20080725, end: 20080725

REACTIONS (1)
  - EOSINOPHILIC PNEUMONIA [None]
